FAERS Safety Report 4955765-7 (Version None)
Quarter: 2006Q1

REPORT INFORMATION
  Report Type: 
  Country: None (occurrence: None)
  Receive Date: 20060127
  Receipt Date: 20050921
  Transmission Date: 20060701
  Serious: Yes (Other)
  Sender: FDA-Public Use
  Company Number: 2005-US-00473

PATIENT
  Age: 47 Year
  Sex: Female
  Weight: 97.5234 kg

DRUGS (1)
  1. CLOZAPINE [Suspect]
     Indication: BIPOLAR DISORDER
     Dosage: 150 MG, QD, ORAL
     Route: 048
     Dates: start: 20020301, end: 20050801

REACTIONS (1)
  - LEUKOPENIA [None]
